FAERS Safety Report 7984074-7 (Version None)
Quarter: 2011Q4

REPORT INFORMATION
  Report Type: 
  Country: None (occurrence: None)
  Receive Date: 20111214
  Receipt Date: 20111201
  Transmission Date: 20120403
  Serious: Yes (Hospitalization, Other)
  Sender: FDA-Public Use
  Company Number: 2011P1011855

PATIENT
  Age: 58 Year
  Sex: Female

DRUGS (1)
  1. MORPHINE SULFATE [Suspect]
     Indication: ANAESTHESIA
     Dosage: 2 MG;X1;INTH
     Route: 037
     Dates: start: 20111121

REACTIONS (3)
  - INCORRECT DOSE ADMINISTERED [None]
  - APNOEA [None]
  - INCORRECT ROUTE OF DRUG ADMINISTRATION [None]
